FAERS Safety Report 8442976-1 (Version None)
Quarter: 2012Q2

REPORT INFORMATION
  Report Type: 
  Country: None (occurrence: None)
  Receive Date: 20120615
  Receipt Date: 20120611
  Transmission Date: 20120825
  Serious: Yes (Death, Other)
  Sender: FDA-Public Use
  Company Number: CA-ELI_LILLY_AND_COMPANY-CA201206004396

PATIENT
  Age: 76 Year
  Sex: Male

DRUGS (6)
  1. FORTEO [Suspect]
     Indication: OSTEOPOROSIS
     Dosage: 20 UG, QD
     Route: 058
     Dates: start: 20111017
  2. PREDNISONE [Concomitant]
  3. ATIVAN [Concomitant]
  4. BIOCAL-D [Concomitant]
  5. VENTOLIN [Concomitant]
  6. SYMBICORT [Concomitant]

REACTIONS (2)
  - DEATH [None]
  - ASTHMA [None]
